FAERS Safety Report 6047929-9 (Version None)
Quarter: 2009Q1

REPORT INFORMATION
  Report Type: 
  Country: None (occurrence: None)
  Receive Date: 20090123
  Receipt Date: 20090115
  Transmission Date: 20090719
  Serious: Yes (Death)
  Sender: FDA-Public Use
  Company Number: JP-NOVOPROD-280425

PATIENT
  Age: 79 Year
  Sex: Male

DRUGS (4)
  1. NOVOSEVEN [Suspect]
     Indication: ACQUIRED HAEMOPHILIA
     Dosage: 14.4 MG, QD
     Route: 042
     Dates: start: 20071101, end: 20071201
  2. FEIBA [Concomitant]
     Indication: ACQUIRED HAEMOPHILIA
     Dosage: 8000 U, QD
     Route: 042
     Dates: start: 20071201
  3. TRANEXAMIC [Concomitant]
     Indication: ACQUIRED HAEMOPHILIA
     Dosage: 1.5 G, QD
     Route: 042
     Dates: start: 20071201
  4. PREDNISOLONE SODIUM SUCCINATE INJ [Concomitant]
     Dosage: UNKNOWN
     Route: 042
     Dates: start: 20071201

REACTIONS (1)
  - DEATH [None]
